FAERS Safety Report 8111903-9 (Version None)
Quarter: 2012Q1

REPORT INFORMATION
  Report Type: 
  Country: None (occurrence: None)
  Receive Date: 20120203
  Receipt Date: 20110201
  Transmission Date: 20120608
  Serious: No
  Sender: FDA-Public Use
  Company Number: US-GLAXOSMITHKLINE-A0911182A

PATIENT
  Sex: Female

DRUGS (11)
  1. ARIXTRA [Suspect]
     Indication: THROMBOSIS
     Dosage: 7.5MG PER DAY
     Route: 058
     Dates: start: 20100601
  2. AMBIEN CR [Concomitant]
  3. ESTRATEST [Concomitant]
  4. SKELAXIN [Concomitant]
  5. VERAPAMIL [Concomitant]
  6. NORCO [Concomitant]
  7. LISINOPRIL [Concomitant]
  8. FOLIC ACID [Concomitant]
  9. RELPAX [Concomitant]
  10. GABAPENTIN [Concomitant]
  11. LEXAPRO [Concomitant]

REACTIONS (2)
  - PRODUCT QUALITY ISSUE [None]
  - CONTUSION [None]
